FAERS Safety Report 7611406-1 (Version None)
Quarter: 2011Q3

REPORT INFORMATION
  Report Type: 
  Country: None (occurrence: None)
  Receive Date: 20110707
  Receipt Date: 20110627
  Transmission Date: 20111222
  Serious: Yes (Hospitalization)
  Sender: FDA-Public Use
  Company Number: 2011SP030091

PATIENT
  Age: 67 Year
  Sex: Male

DRUGS (11)
  1. ROSUVASTATIN CALCIUM [Concomitant]
  2. DOCUSATE SODIUM [Concomitant]
  3. LEVETIRACETAM [Concomitant]
  4. HYDROCHLORIDE [Concomitant]
  5. ASPIRIN [Suspect]
     Indication: CEREBROVASCULAR ACCIDENT PROPHYLAXIS
     Dosage: 325 MG, QD
  6. ONDANSETRON [Concomitant]
  7. CALCIUM CARBONATE [Concomitant]
  8. PLAVIX [Suspect]
     Indication: CEREBROVASCULAR ACCIDENT PROPHYLAXIS
     Dosage: 75 MG, QD
  9. LISINOPRIL [Concomitant]
  10. TEMODAR [Suspect]
     Indication: GLIOBLASTOMA MULTIFORME
     Dosage: 150,300 MG, QD, IV
     Route: 042
     Dates: start: 20110418, end: 20110617
  11. TEMODAR [Suspect]
     Indication: GLIOBLASTOMA MULTIFORME
     Dosage: 150,300 MG, QD, IV
     Route: 042
     Dates: start: 20110214, end: 20110327

REACTIONS (4)
  - VISION BLURRED [None]
  - CEREBRAL HAEMORRHAGE [None]
  - CHEST PAIN [None]
  - APHASIA [None]
